FAERS Safety Report 6377463-8 (Version None)
Quarter: 2009Q3

REPORT INFORMATION
  Report Type: 
  Country: None (occurrence: None)
  Receive Date: 20090923
  Receipt Date: 20090923
  Transmission Date: 20100115
  Serious: Yes (Hospitalization)
  Sender: FDA-Public Use
  Company Number: None

PATIENT
  Age: 81 Year
  Sex: Female
  Weight: 118 kg

DRUGS (13)
  1. WARFARIN SODIUM [Suspect]
     Indication: ATRIAL FIBRILLATION
     Dosage: 5MG PO QD UNKNOWN
     Route: 048
  2. APAP TAB [Concomitant]
  3. ASPIRIN [Concomitant]
  4. DIPHENHYDRAMINE HCL [Concomitant]
  5. ASCORBIC ACID [Concomitant]
  6. LORAZEPAM [Concomitant]
  7. FERROUS SULFATE TAB [Concomitant]
  8. FOSFOMYCIN [Concomitant]
  9. HYDROMORPHONE [Concomitant]
  10. METHADONE HYDROCHLORIDE [Concomitant]
  11. MULTI-VITAMIN [Concomitant]
  12. SERTRALINE HCL [Concomitant]
  13. ZINC SULFATE [Concomitant]

REACTIONS (3)
  - CATHETER SITE HAEMORRHAGE [None]
  - HAEMOGLOBIN DECREASED [None]
  - UNRESPONSIVE TO STIMULI [None]
